FAERS Safety Report 7944741-8 (Version None)
Quarter: 2011Q4

REPORT INFORMATION
  Report Type: 
  Country: None (occurrence: None)
  Receive Date: 20111122
  Receipt Date: 20110907
  Transmission Date: 20120403
  Serious: No
  Sender: FDA-Public Use
  Company Number: PHHY2011US55262

PATIENT
  Age: 53 Year
  Sex: Female

DRUGS (6)
  1. FISH OIL (FISH OIL) [Concomitant]
  2. PROBIOTICS (NO INGREDIENTS/SUBSTANCES) [Concomitant]
  3. GILENYA [Suspect]
     Dosage: 0,5 MG, QD, ORAL
     Route: 048
  4. VITAMIN B12 [Concomitant]
  5. MULTIVITAMIN [Concomitant]
  6. ASCORBIC ACID [Concomitant]

REACTIONS (5)
  - BACK PAIN [None]
  - VISION BLURRED [None]
  - COUGH [None]
  - RENAL PAIN [None]
  - VISUAL ACUITY REDUCED [None]
